FAERS Safety Report 12913022 (Version 1)
Quarter: 2016Q4

REPORT INFORMATION
  Report Type: Report from Study
  Country: FR (occurrence: FR)
  Receive Date: 20161104
  Receipt Date: 20161104
  Transmission Date: 20170207
  Serious: Yes (Death, Life-Threatening)
  Sender: FDA-Public Use
  Company Number: FR-BAXTER-2016BAX055977

PATIENT
  Age: 23 Year
  Sex: Male

DRUGS (3)
  1. BUSILVEX [Suspect]
     Active Substance: BUSULFAN
     Indication: PRODUCT USED FOR UNKNOWN INDICATION
     Route: 042
  2. ENDOXAN 1000 MG, POUDRE POUR SOLUTION INJECTABLE [Suspect]
     Active Substance: CYCLOPHOSPHAMIDE
     Indication: PRODUCT USED FOR UNKNOWN INDICATION
     Route: 042
  3. MYLOTARG [Suspect]
     Active Substance: GEMTUZUMAB OZOGAMICIN
     Indication: PRODUCT USED FOR UNKNOWN INDICATION
     Route: 065

REACTIONS (3)
  - Duodenal ulcer haemorrhage [Fatal]
  - Venoocclusive liver disease [Unknown]
  - Haematemesis [Fatal]

NARRATIVE: CASE EVENT DATE: 20081025
